FAERS Safety Report 8155061-3 (Version None)
Quarter: 2012Q1

REPORT INFORMATION
  Report Type: 
  Country: None (occurrence: None)
  Receive Date: 20120221
  Receipt Date: 20120215
  Transmission Date: 20120608
  Serious: No
  Sender: FDA-Public Use
  Company Number: US-PFIZER INC-2012043449

PATIENT
  Sex: Female
  Weight: 72.6 kg

DRUGS (2)
  1. PREMARIN [Suspect]
     Dosage: UNKN, DAILY
     Route: 067
     Dates: start: 20120101, end: 20120213
  2. PREMARIN [Suspect]
     Dosage: TWO TIMES A WEEK
     Route: 067
     Dates: start: 20111106

REACTIONS (1)
  - UTERINE SPASM [None]
